FAERS Safety Report 4340932-6 (Version None)
Quarter: 2004Q2

REPORT INFORMATION
  Report Type: 
  Country: None (occurrence: None)
  Receive Date: 20040413
  Receipt Date: 20040401
  Transmission Date: 20050107
  Serious: Yes (Death)
  Sender: FDA-Public Use
  Company Number: 028-20785-04040118

PATIENT
  Age: 64 Year
  Sex: Male

DRUGS (2)
  1. THALOMID [Suspect]
     Indication: DIARRHOEA
     Dosage: 200 MG, DAILY, ORAL
     Route: 048
     Dates: start: 20001114, end: 20001117
  2. IRINOTECAN (IRINOTECAN) [Concomitant]

REACTIONS (2)
  - DIZZINESS [None]
  - DRUG INEFFECTIVE [None]
